FAERS Safety Report 4642843-5 (Version None)
Quarter: 2005Q2

REPORT INFORMATION
  Report Type: 
  Country: None (occurrence: None)
  Receive Date: 20050421
  Receipt Date: 20050411
  Transmission Date: 20051028
  Serious: Yes (Hospitalization)
  Sender: FDA-Public Use
  Company Number: 2005057516

PATIENT
  Age: 36 Year
  Sex: Male

DRUGS (1)
  1. BEXTRA [Suspect]
     Indication: BACK PAIN
     Dosage: 20 MG 1 IN 1 D, ORAL
     Route: 048
     Dates: start: 20050323, end: 20050327

REACTIONS (3)
  - CHEST PAIN [None]
  - HYPOAESTHESIA [None]
  - SYNCOPE [None]
